FAERS Safety Report 17599487 (Version 1)
Quarter: 2020Q1

REPORT INFORMATION
  Report Type: Spontaneous
  Country: US (occurrence: US)
  Receive Date: 20200330
  Receipt Date: 20200330
  Transmission Date: 20200409
  Serious: Yes (Hospitalization, Other)
  Sender: FDA-Public Use
  Company Number: US-B.I. PHARMACEUTICALS,INC./RIDGEFIELD-2020-US-016249

PATIENT
  Age: 84 Year
  Sex: Female

DRUGS (1)
  1. PRADAXA [Suspect]
     Active Substance: DABIGATRAN ETEXILATE MESYLATE
     Indication: THROMBOSIS PROPHYLAXIS
     Route: 065
     Dates: start: 2018, end: 2018

REACTIONS (6)
  - Internal haemorrhage [Recovered/Resolved]
  - Thrombosis [Recovered/Resolved]
  - Phlebitis superficial [Recovered/Resolved]
  - Muscle injury [Not Recovered/Not Resolved]
  - Pulmonary thrombosis [Recovered/Resolved]
  - Low carbohydrate diet [Not Recovered/Not Resolved]

NARRATIVE: CASE EVENT DATE: 2018
